FAERS Safety Report 9911647 (Version 2)
Quarter: 2014Q2

REPORT INFORMATION
  Report Type: Spontaneous
  Country: DK (occurrence: DK)
  Receive Date: 20140219
  Receipt Date: 20140421
  Transmission Date: 20141212
  Serious: Yes (Other)
  Sender: FDA-Public Use
  Company Number: PHHY2014DK016844

PATIENT
  Age: 60 Year
  Sex: Female

DRUGS (3)
  1. OXAPAX [Suspect]
     Indication: ANXIETY
     Dosage: 7.5 MG, TID
     Route: 048
     Dates: start: 2013
  2. OXAPAX [Suspect]
     Dosage: 7.5 MG, BID
     Dates: start: 20140106
  3. CITALOPRAM ORION [Concomitant]
     Indication: ANXIETY
     Dosage: 20 MG, QD
     Route: 048

REACTIONS (11)
  - Arthralgia [Not Recovered/Not Resolved]
  - Neck pain [Not Recovered/Not Resolved]
  - Tremor [Not Recovered/Not Resolved]
  - Balance disorder [Not Recovered/Not Resolved]
  - Anxiety [Not Recovered/Not Resolved]
  - Discomfort [Not Recovered/Not Resolved]
  - Musculoskeletal pain [Not Recovered/Not Resolved]
  - Headache [Not Recovered/Not Resolved]
  - Restlessness [Not Recovered/Not Resolved]
  - Drug dependence [Not Recovered/Not Resolved]
  - Drug withdrawal syndrome [Not Recovered/Not Resolved]
